FAERS Safety Report 13538882 (Version 1)
Quarter: 2017Q2

REPORT INFORMATION
  Report Type: Spontaneous
  Country: US (occurrence: US)
  Receive Date: 20170511
  Receipt Date: 20170511
  Transmission Date: 20170830
  Serious: No
  Sender: FDA-Public Use
  Company Number: None

PATIENT
  Age: 3 Year
  Sex: Male
  Weight: 18.9 kg

DRUGS (6)
  1. MUCINEX CHILDREN^S MULTISYMPTOM COLD SYRUP [Concomitant]
  2. CHILDRENS ZYRTEC [Concomitant]
     Active Substance: CETIRIZINE HYDROCHLORIDE
  3. AMOXICILLIN FOR ORAL SUSPENSION [Suspect]
     Active Substance: AMOXICILLIN
     Indication: PHARYNGITIS STREPTOCOCCAL
     Dosage: QUANTITY:1.5 TEASPOON(S);?
     Route: 048
     Dates: start: 20170509, end: 20170511
  4. GUMMY PROBIOTIC [Concomitant]
  5. CHILDRENS IBUPROFEN [Concomitant]
     Active Substance: IBUPROFEN
  6. GUMMY MULTIVITAMIN [Concomitant]

REACTIONS (3)
  - Pain in extremity [None]
  - Crying [None]
  - Gait disturbance [None]

NARRATIVE: CASE EVENT DATE: 20170511
